FAERS Safety Report 5361368-5 (Version None)
Quarter: 2007Q2

REPORT INFORMATION
  Report Type: 
  Country: None (occurrence: None)
  Receive Date: 20070612
  Receipt Date: 20070605
  Transmission Date: 20071010
  Serious: Yes (Hospitalization)
  Sender: FDA-Public Use
  Company Number: 2007SP011066

PATIENT
  Age: 57 Year
  Sex: Male
  Weight: 60 kg

DRUGS (2)
  1. PEG-INTRON [Suspect]
     Indication: HEPATITIS C
     Dosage: 100 MCG;QW;SC
     Route: 058
     Dates: start: 20070208, end: 20070517
  2. REBETOL [Suspect]
     Indication: HEPATITIS C
     Dosage: 300 MG; PO
     Route: 048
     Dates: start: 20070208, end: 20070517

REACTIONS (1)
  - CONFUSIONAL STATE [None]
